FAERS Safety Report 4462698-1 (Version None)
Quarter: 2004Q3

REPORT INFORMATION
  Report Type: 
  Country: None (occurrence: None)
  Receive Date: 20040927
  Receipt Date: 20040915
  Transmission Date: 20050211
  Serious: Yes (Other)
  Sender: FDA-Public Use
  Company Number: 2004051739

PATIENT
  Age: 77 Year
  Sex: Male
  Weight: 62.1428 kg

DRUGS (4)
  1. LIPITOR [Suspect]
     Indication: BLOOD CHOLESTEROL INCREASED
     Dosage: 10 MG (10 MG, 1 IN 1 D), ORAL
     Route: 048
     Dates: start: 20030530, end: 20040315
  2. ASPIRIN [Suspect]
     Indication: PROPHYLAXIS
     Dosage: 325 MG (325 MG, 1 IN 1 D), ORAL
     Route: 048
     Dates: end: 20040419
  3. OLMESARTAN MEDOXOMIL (OLMESARTAN MEDOXOMIL) [Concomitant]
  4. ALL OTHER THERAPEUTIC PRODUCTS (ALL OTHER THERAPEUTIC PRODUCTS) [Concomitant]

REACTIONS (13)
  - ALOPECIA [None]
  - ARTHRALGIA [None]
  - ARTHRITIS [None]
  - BLISTER [None]
  - CHILLS [None]
  - DIZZINESS [None]
  - DRUG ERUPTION [None]
  - DYSPNOEA [None]
  - FEELING COLD [None]
  - HYPOTRICHOSIS [None]
  - OEDEMA PERIPHERAL [None]
  - PYREXIA [None]
  - WEIGHT INCREASED [None]
